FAERS Safety Report 6823949-9 (Version None)
Quarter: 2010Q3

REPORT INFORMATION
  Report Type: 
  Country: None (occurrence: None)
  Receive Date: 20100708
  Receipt Date: 20060922
  Transmission Date: 20110219
  Serious: No
  Sender: FDA-Public Use
  Company Number: US-PFIZER INC-2006114058

PATIENT
  Sex: Male
  Weight: 104.33 kg

DRUGS (3)
  1. CHANTIX [Suspect]
     Indication: SMOKING CESSATION THERAPY
     Route: 048
     Dates: start: 20060801, end: 20060901
  2. LOVASTATIN [Concomitant]
     Indication: BLOOD TRIGLYCERIDES INCREASED
     Dates: start: 20060101
  3. HYTRIN [Concomitant]
     Indication: PROSTATIC DISORDER

REACTIONS (4)
  - COLD SWEAT [None]
  - CONFUSIONAL STATE [None]
  - FATIGUE [None]
  - SOMNOLENCE [None]
